FAERS Safety Report 22128419 (Version 1)
Quarter: 2023Q1

REPORT INFORMATION
  Report Type: Spontaneous
  Country: US (occurrence: US)
  Receive Date: 20230323
  Receipt Date: 20230323
  Transmission Date: 20230417
  Serious: Yes (Other)
  Sender: FDA-Public Use
  Company Number: US-APIL-2308573US

PATIENT
  Age: 34 Year
  Sex: Female

DRUGS (3)
  1. VRAYLAR [Suspect]
     Active Substance: CARIPRAZINE
     Indication: Depression
     Dosage: 1.5 MG, QD
     Route: 048
     Dates: start: 20230220
  2. VRAYLAR [Suspect]
     Active Substance: CARIPRAZINE
     Indication: Anxiety
  3. VRAYLAR [Suspect]
     Active Substance: CARIPRAZINE
     Indication: Bipolar disorder

REACTIONS (5)
  - Suicidal ideation [Unknown]
  - Paranoia [Unknown]
  - Anxiety [Unknown]
  - Hallucination [Unknown]
  - Tremor [Unknown]

NARRATIVE: CASE EVENT DATE: 20230201
